FAERS Safety Report 24795627 (Version 1)
Quarter: 2025Q1

REPORT INFORMATION
  Report Type: Spontaneous
  Country: CN (occurrence: CN)
  Receive Date: 20250101
  Receipt Date: 20250101
  Transmission Date: 20250409
  Serious: Yes (Life-Threatening)
  Sender: ASTELLAS
  Company Number: CN-ASTELLAS-2024-AER-028280

PATIENT
  Age: 5 Year
  Sex: Female
  Weight: 16 kg

DRUGS (4)
  1. PROGRAF [Suspect]
     Active Substance: TACROLIMUS
     Indication: Prophylaxis against transplant rejection
     Dosage: 1 MG Q12H
     Route: 048
     Dates: start: 202411, end: 202411
  2. PROGRAF [Suspect]
     Active Substance: TACROLIMUS
     Dosage: 0.5MG, 2 TIMES/DAY
     Route: 048
     Dates: start: 20241130, end: 20241202
  3. METHYLPREDNISOLONE [Concomitant]
     Active Substance: METHYLPREDNISOLONE
     Indication: Prophylaxis against transplant rejection
     Dosage: 30 MG Q12H IV
     Route: 042
     Dates: start: 20241130
  4. METHYLPREDNISOLONE [Concomitant]
     Active Substance: METHYLPREDNISOLONE
     Dosage: 35 MG Q12H
     Route: 042
     Dates: start: 202411, end: 202411

REACTIONS (1)
  - Epilepsy [Recovering/Resolving]

NARRATIVE: CASE EVENT DATE: 20241203
